FAERS Safety Report 14149176 (Version 4)
Quarter: 2018Q1

REPORT INFORMATION
  Report Type: Spontaneous
  Country: BR (occurrence: BR)
  Receive Date: 20171101
  Receipt Date: 20180208
  Transmission Date: 20180508
  Serious: Yes (Other)
  Sender: FDA-Public Use
  Company Number: PHHY2017BR160263

PATIENT
  Sex: Male
  Weight: 97 kg

DRUGS (6)
  1. NEVANAC UNO [Suspect]
     Active Substance: NEPAFENAC
     Indication: CATARACT
     Dosage: 1 GTT, Q4H
     Route: 047
     Dates: start: 20171029, end: 201712
  2. LOSARTAN. [Concomitant]
     Active Substance: LOSARTAN
     Indication: HYPERTENSION
     Dosage: 50 MG, BID
     Route: 048
  3. ATENOLOL. [Concomitant]
     Active Substance: ATENOLOL
     Indication: ARRHYTHMIA
  4. MAREVAN [Concomitant]
     Active Substance: WARFARIN SODIUM
     Indication: ANTICOAGULANT THERAPY
     Dosage: ONE AND A HALF TABLETS A DAY
     Route: 048
  5. AMLODIPINE [Concomitant]
     Active Substance: AMLODIPINE BESYLATE
     Indication: HYPERTENSION
     Dosage: 0.5 MG, BID
     Route: 048
  6. ATENOLOL. [Concomitant]
     Active Substance: ATENOLOL
     Indication: HYPERTENSION
     Dosage: 25 MG, BID
     Route: 048

REACTIONS (5)
  - Product physical consistency issue [Unknown]
  - Astigmatism [Unknown]
  - Vision blurred [Unknown]
  - Eye pain [Unknown]
  - Liquid product physical issue [Unknown]
